FAERS Safety Report 16384532 (Version 1)
Quarter: 2019Q2

REPORT INFORMATION
  Report Type: Spontaneous
  Country: FR (occurrence: FR)
  Receive Date: 20190603
  Receipt Date: 20190603
  Transmission Date: 20190711
  Serious: Yes (Hospitalization)
  Sender: FDA-Public Use
  Company Number: FR-MYLANLABS-2019M1051220

PATIENT
  Age: 74 Year
  Sex: Female

DRUGS (1)
  1. MIDAZOLAM [Suspect]
     Active Substance: MIDAZOLAM HYDROCHLORIDE
     Indication: INDUCTION OF ANAESTHESIA
     Dosage: 2.5 MILLIGRAM, TOTAL
     Route: 040
     Dates: start: 20181011

REACTIONS (5)
  - Product monitoring error [Recovered/Resolved]
  - Somnolence [Recovered/Resolved]
  - Oxygen saturation decreased [Recovered/Resolved]
  - Anaesthetic complication [Recovered/Resolved]
  - Bradycardia [Recovering/Resolving]

NARRATIVE: CASE EVENT DATE: 20181011
